FAERS Safety Report 17809231 (Version 1)
Quarter: 2020Q2

REPORT INFORMATION
  Report Type: Spontaneous
  Country: JP (occurrence: JP)
  Receive Date: 20200520
  Receipt Date: 20200520
  Transmission Date: 20200714
  Serious: Yes (Hospitalization, Other)
  Sender: FDA-Public Use
  Company Number: JP-SA-2018SA387257

PATIENT
  Age: 77 Year
  Sex: Male
  Weight: 39 kg

DRUGS (10)
  1. ELPLAT [Suspect]
     Active Substance: OXALIPLATIN
     Indication: GASTRIC CANCER
     Dosage: 100 MG, QD
     Route: 041
     Dates: start: 20180112, end: 20180112
  2. ELPLAT [Suspect]
     Active Substance: OXALIPLATIN
     Dosage: 100 MG, QD
     Route: 041
  3. MAGMITT [Concomitant]
     Active Substance: MAGNESIUM OXIDE
  4. TS-1 [Suspect]
     Active Substance: GIMERACIL\OTERACIL\TEGAFUR
     Indication: GASTRIC CANCER
     Dosage: 60 MG, BID
     Route: 048
     Dates: start: 20180112, end: 20180112
  5. TS-1 [Suspect]
     Active Substance: GIMERACIL\OTERACIL\TEGAFUR
     Dosage: 60 MG, BID
     Route: 048
  6. ALOSENN [SENNA SPP.] [Concomitant]
  7. TRAVATAN Z [Concomitant]
     Active Substance: TRAVOPROST
  8. KARY UNI [PIRENOXINE] [Concomitant]
  9. THYRADIN S [Concomitant]
     Active Substance: LEVOTHYROXINE SODIUM
  10. COSOPT [Concomitant]
     Active Substance: DORZOLAMIDE HYDROCHLORIDE\TIMOLOL MALEATE

REACTIONS (2)
  - Syncope [Recovered/Resolved]
  - Interstitial lung disease [Recovering/Resolving]

NARRATIVE: CASE EVENT DATE: 20181128
